FAERS Safety Report 12522245 (Version 1)
Quarter: 2016Q3

REPORT INFORMATION
  Report Type: Spontaneous
  Country: US (occurrence: US)
  Receive Date: 20160701
  Receipt Date: 20160701
  Transmission Date: 20161109
  Serious: Yes (Other)
  Sender: FDA-Public Use
  Company Number: US-CELGENEUS-USA-2016065491

PATIENT
  Sex: Male
  Weight: 87.62 kg

DRUGS (4)
  1. THALOMID [Suspect]
     Active Substance: THALIDOMIDE
     Dosage: 325 MILLIGRAM
     Route: 048
     Dates: start: 200806
  2. THALOMID [Suspect]
     Active Substance: THALIDOMIDE
     Indication: PLASMA CELL MYELOMA
     Route: 048
     Dates: start: 200804
  3. ECOTRIN [Concomitant]
     Active Substance: ASPIRIN
     Indication: PRODUCT USED FOR UNKNOWN INDICATION
     Route: 065
  4. THALOMID [Suspect]
     Active Substance: THALIDOMIDE
     Route: 048
     Dates: start: 20151211

REACTIONS (1)
  - Glaucoma [Unknown]
